FAERS Safety Report 10662017 (Version 1)
Quarter: 2014Q4

REPORT INFORMATION
  Report Type: Spontaneous
  Country: GB (occurrence: GB)
  Receive Date: 20141218
  Receipt Date: 20141218
  Transmission Date: 20150529
  Serious: Yes (Life-Threatening)
  Sender: FDA-Public Use
  Company Number: GB-BANPHARM-20143294

PATIENT
  Age: 6 Day
  Sex: Female
  Weight: 1.33 kg

DRUGS (6)
  1. CAFFEINE. [Concomitant]
     Active Substance: CAFFEINE
     Dosage: 20 MG, KG,
     Route: 042
     Dates: start: 20141115
  2. VITAMIN K [Concomitant]
     Active Substance: PHYTONADIONE
     Indication: HAEMORRHAGIC DISEASE OF NEWBORN
     Dosage: 400 UG/KG,
     Route: 030
     Dates: start: 20141114
  3. IBUPROFEN UNKNOWN PRODUCT [Suspect]
     Active Substance: IBUPROFEN
     Indication: PATENT DUCTUS ARTERIOSUS
     Route: 042
     Dates: start: 20141118, end: 20141120
  4. CURSOSURF [Concomitant]
     Indication: NEONATAL RESPIRATORY DISTRESS SYNDROME
     Route: 039
     Dates: start: 20141114
  5. GENTAMICIN. [Concomitant]
     Active Substance: GENTAMICIN
     Indication: SEPSIS
     Dosage: 4 MG, KG,
     Route: 042
     Dates: start: 20141114, end: 20141117
  6. BENZYLPENICILLIN [Concomitant]
     Active Substance: PENICILLIN G
     Indication: SEPSIS
     Dosage: 50 MG, KG,
     Route: 042
     Dates: start: 20141114, end: 20141117

REACTIONS (1)
  - Gastrointestinal perforation [Recovering/Resolving]

NARRATIVE: CASE EVENT DATE: 20141120
